FAERS Safety Report 18943595 (Version 1)
Quarter: 2021Q1

REPORT INFORMATION
  Report Type: Spontaneous
  Country: US (occurrence: US)
  Receive Date: 20210226
  Receipt Date: 20210226
  Transmission Date: 20210420
  Serious: No
  Sender: FDA-Public Use
  Company Number: US-CELGENEUS-USA-20210204576

PATIENT
  Sex: Male
  Weight: 91.71 kg

DRUGS (2)
  1. REVLIMID [Suspect]
     Active Substance: LENALIDOMIDE
     Indication: NON-HODGKIN^S LYMPHOMA
  2. REVLIMID [Suspect]
     Active Substance: LENALIDOMIDE
     Indication: B-CELL LYMPHOMA
     Dosage: 20 MILLIGRAM
     Route: 048
     Dates: start: 20210113

REACTIONS (8)
  - Burning sensation [Unknown]
  - Abdominal discomfort [Unknown]
  - Vision blurred [Unknown]
  - Rash pruritic [Unknown]
  - Hypoacusis [Unknown]
  - Constipation [Unknown]
  - Oropharyngeal pain [Unknown]
  - Diarrhoea [Unknown]

NARRATIVE: CASE EVENT DATE: 2021
